FAERS Safety Report 21950483 (Version 1)
Quarter: 2023Q1

REPORT INFORMATION
  Report Type: Spontaneous
  Country: US (occurrence: None)
  Receive Date: 20230202
  Receipt Date: 20230202
  Transmission Date: 20230418
  Serious: Yes (Death)
  Sender: FDA-Public Use
  Company Number: None

PATIENT
  Sex: Female

DRUGS (13)
  1. REPATHA [Suspect]
     Active Substance: EVOLOCUMAB
     Indication: Hyperlipidaemia
     Route: 024
     Dates: start: 20171031, end: 20230202
  2. CEFDINIR [Concomitant]
     Active Substance: CEFDINIR
  3. DULOXETINE [Concomitant]
     Active Substance: DULOXETINE
  4. EPIPEN 2-PAK INJ [Concomitant]
  5. JANUMET XR [Concomitant]
  6. MELOXICAM [Concomitant]
     Active Substance: MELOXICAM
  7. MONTELUKAST [Concomitant]
     Active Substance: MONTELUKAST SODIUM
  8. NEURONTIN [Concomitant]
     Active Substance: GABAPENTIN
  9. PANTOPRAZOLE [Concomitant]
     Active Substance: PANTOPRAZOLE
  10. PROBIOTIC [Concomitant]
  11. RAMIPRIL [Concomitant]
     Active Substance: RAMIPRIL
  12. VITAMIN B12 [Concomitant]
  13. VITAMIN 03 CAP [Concomitant]

REACTIONS (1)
  - Death [None]
